FAERS Safety Report 5431412-5 (Version None)
Quarter: 2007Q3

REPORT INFORMATION
  Report Type: 
  Country: None (occurrence: None)
  Receive Date: 20070830
  Receipt Date: 20070604
  Transmission Date: 20080115
  Serious: No
  Sender: FDA-Public Use
  Company Number: A0654100A

PATIENT

DRUGS (3)
  1. WELLBUTRIN XL [Suspect]
     Indication: DEPRESSION
     Dosage: 300MG PER DAY
     Route: 048
  2. ABILIFY [Concomitant]
  3. RISPERIDONE [Concomitant]

REACTIONS (3)
  - AGITATION [None]
  - DRUG INTERACTION [None]
  - OBSESSIVE THOUGHTS [None]
